FAERS Safety Report 9741103 (Version 1)
Quarter: 2013Q4

REPORT INFORMATION
  Report Type: Spontaneous
  Country: GB (occurrence: GB)
  Receive Date: 20131209
  Receipt Date: 20131209
  Transmission Date: 20140711
  Serious: Yes (Congenital Anomaly)
  Sender: FDA-Public Use
  Company Number: GB-TEVA-448726ISR

PATIENT
  Sex: Male

DRUGS (11)
  1. HALOPERIDOL [Suspect]
     Indication: MATERNAL EXPOSURE BEFORE PREGNANCY
     Route: 064
  2. VALIUM [Suspect]
     Indication: MATERNAL EXPOSURE BEFORE PREGNANCY
     Route: 064
  3. SURMONTIL [Suspect]
     Indication: MATERNAL EXPOSURE BEFORE PREGNANCY
     Route: 064
  4. KEMADRIN [Suspect]
     Indication: MATERNAL EXPOSURE BEFORE PREGNANCY
     Route: 064
  5. ISTIN [Suspect]
     Indication: MATERNAL EXPOSURE BEFORE PREGNANCY
     Route: 064
  6. DEPIXOL [Suspect]
     Indication: MATERNAL EXPOSURE BEFORE PREGNANCY
     Route: 064
  7. DISIPAL [Suspect]
     Indication: MATERNAL EXPOSURE BEFORE PREGNANCY
     Route: 064
  8. RELACTON-C [Suspect]
     Indication: MATERNAL EXPOSURE BEFORE PREGNANCY
     Route: 064
  9. NORMAXIN [Suspect]
     Indication: MATERNAL EXPOSURE BEFORE PREGNANCY
     Route: 064
  10. DROLEPTAN [Suspect]
     Indication: MATERNAL EXPOSURE BEFORE PREGNANCY
     Route: 064
  11. SPARINE [Suspect]
     Indication: MATERNAL EXPOSURE BEFORE PREGNANCY
     Route: 064

REACTIONS (2)
  - Blindness transient [Recovered/Resolved]
  - Learning disability [Unknown]
